FAERS Safety Report 13069839 (Version 2)
Quarter: 2017Q1

REPORT INFORMATION
  Report Type: Report from Study
  Country: NL (occurrence: NL)
  Receive Date: 20161228
  Receipt Date: 20170113
  Transmission Date: 20170428
  Serious: Yes (Death)
  Sender: FDA-Public Use
  Company Number: NL-BAXALTA-2016BLT009554

PATIENT
  Sex: Male

DRUGS (3)
  1. NADROPARIN [Concomitant]
     Active Substance: NADROPARIN
     Indication: THROMBOSIS
     Dosage: 5700 IU X 2 DOSES
     Route: 065
  2. CYTARABINE. [Suspect]
     Active Substance: CYTARABINE
     Indication: ACUTE LYMPHOCYTIC LEUKAEMIA
     Dosage: 1600 MG
     Route: 065
     Dates: start: 20161209, end: 20161211
  3. ONCASPAR [Suspect]
     Active Substance: PEGASPARGASE
     Indication: ACUTE LYMPHOCYTIC LEUKAEMIA
     Dosage: 1575 IU
     Route: 065
     Dates: start: 20161211, end: 20161211

REACTIONS (1)
  - Death [Fatal]

NARRATIVE: CASE EVENT DATE: 201612
